FAERS Safety Report 23275968 (Version 2)
Quarter: 2024Q1

REPORT INFORMATION
  Report Type: Spontaneous
  Country: CA (occurrence: CA)
  Receive Date: 20231208
  Receipt Date: 20240105
  Transmission Date: 20240409
  Serious: Yes (Hospitalization, Other)
  Sender: FDA-Public Use
  Company Number: CA-BAUSCH-BL-2023-017986

PATIENT
  Age: 29 Year
  Sex: Male

DRUGS (28)
  1. DIAZEPAM [Suspect]
     Active Substance: DIAZEPAM
     Indication: Akathisia
     Route: 065
  2. DIAZEPAM [Suspect]
     Active Substance: DIAZEPAM
     Indication: Agitation
     Route: 065
  3. DIAZEPAM [Suspect]
     Active Substance: DIAZEPAM
     Route: 065
  4. ARIPIPRAZOLE [Suspect]
     Active Substance: ARIPIPRAZOLE
     Indication: Psychotic disorder
     Route: 048
  5. CLOZAPINE [Suspect]
     Active Substance: CLOZAPINE
     Indication: Psychotic disorder
     Route: 065
  6. CLOZAPINE [Suspect]
     Active Substance: CLOZAPINE
     Route: 065
  7. CLOZAPINE [Suspect]
     Active Substance: CLOZAPINE
     Route: 065
  8. CLOZAPINE [Suspect]
     Active Substance: CLOZAPINE
     Route: 065
  9. LURASIDONE HYDROCHLORIDE [Suspect]
     Active Substance: LURASIDONE HYDROCHLORIDE
     Indication: Psychotic disorder
     Route: 065
  10. LURASIDONE HYDROCHLORIDE [Suspect]
     Active Substance: LURASIDONE HYDROCHLORIDE
     Route: 065
  11. LURASIDONE HYDROCHLORIDE [Suspect]
     Active Substance: LURASIDONE HYDROCHLORIDE
     Route: 065
  12. LURASIDONE HYDROCHLORIDE [Suspect]
     Active Substance: LURASIDONE HYDROCHLORIDE
     Route: 065
  13. OLANZAPINE [Suspect]
     Active Substance: OLANZAPINE
     Indication: Psychotic disorder
     Route: 065
  14. PALIPERIDONE [Suspect]
     Active Substance: PALIPERIDONE
     Indication: Psychotic disorder
     Route: 065
  15. PENTOXIFYLLINE [Suspect]
     Active Substance: PENTOXIFYLLINE
     Indication: Psychotic disorder
     Route: 065
  16. PENTOXIFYLLINE [Suspect]
     Active Substance: PENTOXIFYLLINE
     Indication: Thromboangiitis obliterans
     Route: 065
  17. PENTOXIFYLLINE [Suspect]
     Active Substance: PENTOXIFYLLINE
     Route: 065
  18. RISPERIDONE [Suspect]
     Active Substance: RISPERIDONE
     Indication: Psychotic disorder
     Route: 048
  19. RISPERIDONE [Suspect]
     Active Substance: RISPERIDONE
     Route: 048
  20. ZUCLOPENTHIXOL DECANOATE [Suspect]
     Active Substance: ZUCLOPENTHIXOL DECANOATE
     Indication: Psychotic disorder
     Route: 030
  21. ZUCLOPENTHIXOL DECANOATE [Suspect]
     Active Substance: ZUCLOPENTHIXOL DECANOATE
     Route: 030
  22. ZUCLOPENTHIXOL DECANOATE [Suspect]
     Active Substance: ZUCLOPENTHIXOL DECANOATE
     Route: 065
  23. CLOPIDOGREL [Concomitant]
     Active Substance: CLOPIDOGREL BISULFATE
     Indication: Psychotic disorder
     Dosage: CLOPIDOGREL BISULFATE
     Route: 065
  24. CLOPIDOGREL [Concomitant]
     Active Substance: CLOPIDOGREL BISULFATE
     Indication: Antiplatelet therapy
     Dosage: CLOPIDOGREL
     Route: 065
  25. OMEPRAZOLE [Concomitant]
     Active Substance: OMEPRAZOLE
     Indication: Psychotic disorder
     Route: 065
  26. OMEPRAZOLE [Concomitant]
     Active Substance: OMEPRAZOLE
     Route: 065
  27. ROSUVASTATIN [Concomitant]
     Active Substance: ROSUVASTATIN
     Indication: Psychotic disorder
     Dosage: ROSUVASTATIN CALCIUM
     Route: 065
  28. ROSUVASTATIN [Concomitant]
     Active Substance: ROSUVASTATIN
     Dosage: ROSUVASTATIN
     Route: 065

REACTIONS (6)
  - Akathisia [Unknown]
  - Arrhythmia [Unknown]
  - Sedation complication [Unknown]
  - Agitation [Unknown]
  - Intentional product misuse [Unknown]
  - Drug ineffective [Unknown]
